FAERS Safety Report 23198234 (Version 5)
Quarter: 2025Q1

REPORT INFORMATION
  Report Type: Spontaneous
  Country: US (occurrence: US)
  Receive Date: 20231117
  Receipt Date: 20250213
  Transmission Date: 20250409
  Serious: Yes (Hospitalization, Other)
  Sender: PFIZER
  Company Number: US-PFIZER INC-202300362874

PATIENT
  Age: 66 Year
  Sex: Female
  Weight: 69.85 kg

DRUGS (3)
  1. IBRANCE [Suspect]
     Active Substance: PALBOCICLIB
     Indication: Breast cancer stage IV
     Route: 048
     Dates: start: 20210701
  2. IBRANCE [Suspect]
     Active Substance: PALBOCICLIB
     Indication: Breast cancer female
  3. LETROZOLE [Concomitant]
     Active Substance: LETROZOLE
     Dosage: UNK UNK, DAILY
     Dates: start: 20210701

REACTIONS (5)
  - Pneumonia [Unknown]
  - Pulmonary embolism [Unknown]
  - Speech disorder [Unknown]
  - Coccidioidomycosis [Unknown]
  - Fatigue [Not Recovered/Not Resolved]
